FAERS Safety Report 6201757-X (Version None)
Quarter: 2009Q2

REPORT INFORMATION
  Report Type: 
  Country: None (occurrence: None)
  Receive Date: 20090526
  Receipt Date: 20090212
  Transmission Date: 20091009
  Serious: No
  Sender: FDA-Public Use
  Company Number: US-BRISTOL-MYERS SQUIBB COMPANY-14325666

PATIENT
  Age: 70 Year
  Sex: Female

DRUGS (1)
  1. BARACLUDE [Suspect]
     Indication: HEPATITIS B VIRUS TEST
     Dosage: BY MOUTH; INCREASED TO 1MG DAILY
     Route: 048
     Dates: start: 20070521

REACTIONS (1)
  - DRUG INEFFECTIVE [None]
